FAERS Safety Report 21797131 (Version 1)
Quarter: 2022Q4

REPORT INFORMATION
  Report Type: Spontaneous
  Country: US (occurrence: US)
  Receive Date: 20221230
  Receipt Date: 20221230
  Transmission Date: 20230113
  Serious: Yes (Hospitalization, Other)
  Sender: FDA-Public Use
  Company Number: US-STRIDES ARCOLAB LIMITED-2022SP017506

PATIENT
  Age: 45 Year
  Sex: Female

DRUGS (9)
  1. DEXAMETHASONE [Suspect]
     Active Substance: DEXAMETHASONE
     Indication: Epstein-Barr virus associated lymphoproliferative disorder
     Dosage: UNK (WEANED OFF)
     Route: 065
  2. DEXAMETHASONE [Suspect]
     Active Substance: DEXAMETHASONE
     Indication: Haemophagocytic lymphohistiocytosis
  3. PREDNISOLONE [Suspect]
     Active Substance: PREDNISOLONE
     Indication: Haemophagocytic lymphohistiocytosis
     Dosage: UNK
     Route: 065
  4. PREDNISOLONE [Suspect]
     Active Substance: PREDNISOLONE
     Indication: Evidence based treatment
     Dosage: UNK, CYCLICAL (R-CHOP REGIMEN)
     Route: 065
  5. DOXORUBICIN [Suspect]
     Active Substance: DOXORUBICIN
     Indication: Haemophagocytic lymphohistiocytosis
     Dosage: UNK, CYCLICAL (R-CHOP REGIMEN)
     Route: 065
  6. RITUXIMAB [Suspect]
     Active Substance: RITUXIMAB
     Indication: Epstein-Barr virus associated lymphoproliferative disorder
     Dosage: UNK, CYCLICAL (MULTIPLE ROUNDS OF CHEMOTHERAPY WITH RITUXIMAB AND (R-CHOP REGIMEN))
     Route: 065
  7. RITUXIMAB [Suspect]
     Active Substance: RITUXIMAB
     Indication: Haemophagocytic lymphohistiocytosis
  8. CYCLOPHOSPHAMIDE [Suspect]
     Active Substance: CYCLOPHOSPHAMIDE
     Indication: Haemophagocytic lymphohistiocytosis
     Dosage: UNK, CYCLICAL (R-CHOP REGIMEN)
     Route: 065
  9. VINCRISTINE [Suspect]
     Active Substance: VINCRISTINE
     Indication: Haemophagocytic lymphohistiocytosis
     Dosage: UNK, CYCLICAL (R-CHOP REGIMEN)
     Route: 065

REACTIONS (13)
  - Neuropathy peripheral [Unknown]
  - COVID-19 [Unknown]
  - Encephalitis viral [Unknown]
  - Urinary tract infection [Unknown]
  - Staphylococcal infection [Unknown]
  - Pneumonia viral [Unknown]
  - Pneumonia aspiration [Unknown]
  - Pneumocystis jirovecii pneumonia [Unknown]
  - Epstein-Barr virus infection reactivation [Unknown]
  - Hepatitis infectious mononucleosis [Unknown]
  - Sepsis [Unknown]
  - Drug ineffective [Unknown]
  - Off label use [Unknown]
